FAERS Safety Report 4425414-5 (Version None)
Quarter: 2004Q3

REPORT INFORMATION
  Report Type: 
  Country: None (occurrence: None)
  Receive Date: 20040813
  Receipt Date: 20040802
  Transmission Date: 20050211
  Serious: Yes (Other)
  Sender: FDA-Public Use
  Company Number: JP-GLAXOSMITHKLINE-B0341668A

PATIENT
  Age: 40 Year
  Sex: Male

DRUGS (4)
  1. SEREVENT [Suspect]
     Indication: ASTHMA
     Dosage: 50MCG TWICE PER DAY
     Dates: start: 20031224, end: 20040526
  2. HOKUNALIN [Suspect]
     Route: 062
  3. FLUTIDE DISKUS [Concomitant]
     Dosage: 200MCG PER DAY
     Route: 055
  4. THEOLONG [Concomitant]
     Route: 048

REACTIONS (1)
  - HYPOKALAEMIA [None]
